FAERS Safety Report 4313183-9 (Version None)
Quarter: 2004Q1

REPORT INFORMATION
  Report Type: 
  Country: None (occurrence: None)
  Receive Date: 20040304
  Receipt Date: 20040217
  Transmission Date: 20041129
  Serious: Yes (Other)
  Sender: FDA-Public Use
  Company Number: CEL-2004-00208-ROC

PATIENT
  Sex: Male

DRUGS (1)
  1. DELSYM [Suspect]

REACTIONS (1)
  - CONVULSION [None]
